FAERS Safety Report 6034649-X (Version None)
Quarter: 2009Q1

REPORT INFORMATION
  Report Type: 
  Country: None (occurrence: None)
  Receive Date: 20090112
  Receipt Date: 20080711
  Transmission Date: 20090719
  Serious: No
  Sender: FDA-Public Use
  Company Number: US-ABBOTT-08P-163-0462429-00

PATIENT
  Sex: Male
  Weight: 158 kg

DRUGS (14)
  1. TERAZOSIN HCL [Suspect]
     Indication: DRUG USE FOR UNKNOWN INDICATION
  2. INSULIN GLARGINE [Suspect]
     Indication: TYPE 2 DIABETES MELLITUS
     Route: 058
     Dates: start: 20050101
  3. INSULIN GLARGINE [Suspect]
     Route: 058
     Dates: end: 20070101
  4. INSULIN GLARGINE [Suspect]
     Route: 058
  5. GLIMEPIRIDE [Suspect]
     Indication: TYPE 2 DIABETES MELLITUS
     Dates: start: 20080101
  6. EXENATIDE [Suspect]
     Indication: DRUG USE FOR UNKNOWN INDICATION
  7. METFORMIN HYDROCHLORIDE [Suspect]
     Indication: DRUG USE FOR UNKNOWN INDICATION
     Dates: start: 20050101, end: 20060101
  8. GLIBOMET [Suspect]
     Indication: DRUG USE FOR UNKNOWN INDICATION
     Dates: start: 20050101, end: 20060101
  9. METFORMIN HYDROCHLORIDE [Concomitant]
     Dates: start: 20070401
  10. PRAVASTATIN [Concomitant]
     Indication: DRUG USE FOR UNKNOWN INDICATION
  11. ATENOLOL [Concomitant]
     Indication: DRUG USE FOR UNKNOWN INDICATION
  12. ACETYLSALICYLIC ACID [Concomitant]
     Indication: DRUG USE FOR UNKNOWN INDICATION
  13. FUROSEMIDE [Concomitant]
     Indication: DRUG USE FOR UNKNOWN INDICATION
  14. ALLOPURINOL [Concomitant]
     Indication: DRUG USE FOR UNKNOWN INDICATION

REACTIONS (11)
  - BLOOD GLUCOSE DECREASED [None]
  - BLOOD GLUCOSE INCREASED [None]
  - DIZZINESS POSTURAL [None]
  - DYSSTASIA [None]
  - EPISTAXIS [None]
  - HYPERHIDROSIS [None]
  - HYPOPHAGIA [None]
  - MOBILITY DECREASED [None]
  - TREMOR [None]
  - WEIGHT DECREASED [None]
  - WEIGHT INCREASED [None]
